FAERS Safety Report 7224148-1 (Version None)
Quarter: 2011Q1

REPORT INFORMATION
  Report Type: 
  Country: None (occurrence: None)
  Receive Date: 20110113
  Receipt Date: 20110107
  Transmission Date: 20110831
  Serious: No
  Sender: FDA-Public Use
  Company Number: US-BIOGENIDEC-2011BI001161

PATIENT
  Age: 59 Year
  Sex: Female

DRUGS (13)
  1. COREG [Concomitant]
     Indication: CARDIAC DISORDER
     Dates: start: 20000101
  2. XANAX [Concomitant]
     Indication: BLADDER SPASM
     Dates: start: 20000101
  3. AMODOPHALINE [PRESUMED AMLODIPINE] [Concomitant]
     Indication: BLOOD PRESSURE ABNORMAL
     Dates: start: 20070101
  4. FOSINOPRIL SODIUM [Concomitant]
     Indication: BLOOD PRESSURE ABNORMAL
     Dates: start: 20070101
  5. VYTORIN [Concomitant]
     Indication: BLOOD CHOLESTEROL ABNORMAL
  6. LEXAPRO [Concomitant]
     Indication: DEPRESSION
     Dates: start: 20060101
  7. PLAVIX [Concomitant]
     Indication: CARDIAC DISORDER
     Dates: start: 20000101
  8. NEURONTIN [Concomitant]
     Indication: PAIN
     Dates: start: 20000101
  9. DETROL LA [Concomitant]
     Indication: BLADDER SPASM
     Dates: start: 20000101
  10. TIAPRIDE [Concomitant]
     Indication: DIABETES MELLITUS
     Dates: start: 20000101
  11. PRILOSEC [Concomitant]
     Indication: GASTRIC DISORDER
     Dates: start: 20000101
  12. AVONEX [Suspect]
     Indication: MULTIPLE SCLEROSIS
     Route: 030
     Dates: start: 20101224, end: 20101231
  13. VICOPROFEN [Concomitant]
     Indication: PAIN
     Dates: start: 20000101

REACTIONS (2)
  - BALANCE DISORDER [None]
  - HYPERSENSITIVITY [None]
